FAERS Safety Report 9921985 (Version 1)
Quarter: 2014Q1

REPORT INFORMATION
  Report Type: Spontaneous
  Country: US (occurrence: None)
  Receive Date: 20140221
  Receipt Date: 20140221
  Transmission Date: 20141002
  Serious: Yes (Life-Threatening, Hospitalization)
  Sender: FDA-Public Use
  Company Number: None

PATIENT
  Age: 29 Year
  Sex: Female
  Weight: 45.36 kg

DRUGS (1)
  1. LOW DOSE NALTREXONE [Suspect]
     Indication: COMPLEX REGIONAL PAIN SYNDROME
     Dosage: 1 PILL ONCE DAILY TAKEN BY MOUTH
     Route: 048
     Dates: start: 20130515, end: 20130801

REACTIONS (3)
  - Suicidal ideation [None]
  - Emotional distress [None]
  - Impaired gastric emptying [None]
